FAERS Safety Report 9122213 (Version 1)
Quarter: 2013Q1

REPORT INFORMATION
  Report Type: Spontaneous
  Country: FI (occurrence: FI)
  Receive Date: 20130114
  Receipt Date: 20130114
  Transmission Date: 20140127
  Serious: Yes (Hospitalization, Other)
  Sender: FDA-Public Use
  Company Number: PHHY2013FI002775

PATIENT
  Age: 30 Year
  Sex: Male

DRUGS (1)
  1. LEPONEX [Suspect]
     Indication: SCHIZOPHRENIA
     Dosage: UNK UKN, UNK
     Dates: start: 2003, end: 20121227

REACTIONS (3)
  - Injury [Recovering/Resolving]
  - Fracture [Recovering/Resolving]
  - Neutrophil count decreased [Not Recovered/Not Resolved]
